FAERS Safety Report 17519217 (Version 4)
Quarter: 2021Q2

REPORT INFORMATION
  Report Type: Spontaneous
  Country: ES (occurrence: ES)
  Receive Date: 20200310
  Receipt Date: 20210405
  Transmission Date: 20210716
  Serious: Yes (Hospitalization, Other)
  Sender: FDA-Public Use
  Company Number: ES-AUROBINDO-AUR-APL-2020-011333

PATIENT
  Age: 78 Year
  Sex: Male

DRUGS (10)
  1. CEFTAZIDIME. [Suspect]
     Active Substance: CEFTAZIDIME
     Indication: INFECTION
  2. AMIKACIN. [Suspect]
     Active Substance: AMIKACIN
     Indication: PSEUDOMONAS INFECTION
  3. LEVOFLOXACIN. [Suspect]
     Active Substance: LEVOFLOXACIN
     Indication: PSEUDOMONAS INFECTION
  4. LEVOFLOXACIN. [Suspect]
     Active Substance: LEVOFLOXACIN
     Indication: STAPHYLOCOCCAL INFECTION
     Dosage: UNK, (STOPPED AFTER TOXICODERMNIA REACTION)
     Route: 048
  5. LEVOFLOXACIN. [Suspect]
     Active Substance: LEVOFLOXACIN
     Indication: INFECTION
  6. LEVOFLOXACIN. [Suspect]
     Active Substance: LEVOFLOXACIN
     Indication: ANKLE OPERATION
  7. AMIKACIN. [Suspect]
     Active Substance: AMIKACIN
     Indication: INFECTION
  8. CEFTAZIDIME. [Suspect]
     Active Substance: CEFTAZIDIME
     Indication: PSEUDOMONAS INFECTION
  9. CEFTAZIDIME. [Suspect]
     Active Substance: CEFTAZIDIME
     Indication: STAPHYLOCOCCAL INFECTION
     Dosage: UNK
     Route: 065
  10. AMIKACIN. [Suspect]
     Active Substance: AMIKACIN
     Indication: STAPHYLOCOCCAL INFECTION
     Dosage: UNK
     Route: 065

REACTIONS (4)
  - Therapeutic product effect incomplete [Unknown]
  - Drug ineffective [Recovered/Resolved]
  - Toxic skin eruption [Recovered/Resolved]
  - Condition aggravated [Recovered/Resolved]
